FAERS Safety Report 4361319-6 (Version None)
Quarter: 2004Q2

REPORT INFORMATION
  Report Type: 
  Country: None (occurrence: None)
  Receive Date: 20040520
  Receipt Date: 20040324
  Transmission Date: 20050107
  Serious: Yes (Hospitalization)
  Sender: FDA-Public Use
  Company Number: DE-MERCK-0403DEU00156

PATIENT
  Age: 57 Year
  Sex: Female
  Weight: 70 kg

DRUGS (6)
  1. ASPIRIN [Concomitant]
     Route: 048
  2. BISOPROLOL FUMARATE [Concomitant]
     Indication: CORONARY ARTERY DISEASE
     Route: 048
  3. ENALAPRIL MALEATE [Concomitant]
     Indication: HYPERTENSION
     Route: 048
  4. ZETIA [Suspect]
     Route: 048
     Dates: start: 20030513, end: 20040101
  5. ISOSORBIDE DINITRATE [Concomitant]
     Route: 048
  6. LEVOTHYROXINE SODIUM AND POTASSIUM IODIDE [Concomitant]
     Indication: GOITRE
     Route: 048

REACTIONS (2)
  - ANGINA PECTORIS [None]
  - HEPATITIS B [None]
